FAERS Safety Report 14814687 (Version 1)
Quarter: 2018Q2

REPORT INFORMATION
  Report Type: Spontaneous
  Country: FR (occurrence: FR)
  Receive Date: 20180426
  Receipt Date: 20180426
  Transmission Date: 20180711
  Serious: Yes (Other)
  Sender: FDA-Public Use
  Company Number: FR-MERCK KGAA-2046611

PATIENT
  Age: 54 Year
  Sex: Female

DRUGS (1)
  1. NOVOTHYROX [Suspect]
     Active Substance: LEVOTHYROXINE SODIUM
     Indication: HYPOTHYROIDISM
     Dates: start: 201703

REACTIONS (23)
  - Dizziness [None]
  - Tachycardia [None]
  - Decreased interest [None]
  - Mean cell volume decreased [None]
  - Headache [None]
  - Arthralgia [None]
  - Mood altered [None]
  - Bradycardia [None]
  - Insomnia [None]
  - Mental fatigue [None]
  - Depressed mood [None]
  - Mood swings [None]
  - Emotional distress [None]
  - Hot flush [None]
  - Personal relationship issue [None]
  - Myalgia [None]
  - Depression [None]
  - Malaise [None]
  - Social problem [None]
  - Microcytosis [None]
  - Fatigue [None]
  - Asthenia [None]
  - Mean cell haemoglobin decreased [None]

NARRATIVE: CASE EVENT DATE: 201704
